FAERS Safety Report 16364786 (Version 2)
Quarter: 2019Q2

REPORT INFORMATION
  Report Type: Spontaneous
  Country: JP (occurrence: JP)
  Receive Date: 20190529
  Receipt Date: 20190612
  Transmission Date: 20190711
  Serious: Yes (Other)
  Sender: FDA-Public Use
  Company Number: JP-SUN PHARMACEUTICAL INDUSTRIES LTD-2019R1-208707

PATIENT
  Age: 70 Year
  Sex: Male
  Weight: 52 kg

DRUGS (8)
  1. LIORESAL [Suspect]
     Active Substance: BACLOFEN
     Indication: PAIN IN EXTREMITY
  2. DULOXETINE. [Suspect]
     Active Substance: DULOXETINE
     Indication: BACK PAIN
     Dosage: 20 MILLIGRAM, DAILY
     Route: 065
  3. DULOXETINE. [Suspect]
     Active Substance: DULOXETINE
     Indication: PAIN IN EXTREMITY
  4. LIORESAL [Suspect]
     Active Substance: BACLOFEN
     Indication: BACK PAIN
     Dosage: 30 MILLIGRAM, DAILY
     Route: 065
  5. TRAMADOL. [Suspect]
     Active Substance: TRAMADOL
     Indication: BACK PAIN
     Dosage: 150 MILLIGRAM, DAILY
     Route: 065
  6. TRAMADOL. [Suspect]
     Active Substance: TRAMADOL
     Indication: PAIN IN EXTREMITY
  7. GOSHAJINKIGAN [Concomitant]
     Active Substance: HERBALS
     Indication: PAIN IN EXTREMITY
  8. GOSHAJINKIGAN [Concomitant]
     Active Substance: HERBALS
     Indication: BACK PAIN
     Dosage: 5 GRAM, DAILY
     Route: 065

REACTIONS (2)
  - Serotonin syndrome [Recovering/Resolving]
  - Therapeutic product effect incomplete [Unknown]
